FAERS Safety Report 12012779 (Version 1)
Quarter: 2016Q1

REPORT INFORMATION
  Report Type: Spontaneous
  Country: US (occurrence: US)
  Receive Date: 20160205
  Receipt Date: 20160205
  Transmission Date: 20160526
  Serious: No
  Sender: FDA-Public Use
  Company Number: US-BAUSCH-BL-2015-027408

PATIENT
  Sex: Female

DRUGS (2)
  1. TRICOR [Concomitant]
     Active Substance: FENOFIBRATE
     Indication: GASTROOESOPHAGEAL REFLUX DISEASE
  2. UCERIS [Suspect]
     Active Substance: BUDESONIDE
     Indication: COLITIS ULCERATIVE
     Route: 065
     Dates: start: 201509, end: 2015

REACTIONS (8)
  - Treatment noncompliance [Unknown]
  - Acne [Recovered/Resolved]
  - Fatigue [Recovered/Resolved]
  - Headache [Recovered/Resolved]
  - Hair growth abnormal [Recovering/Resolving]
  - Abdominal distension [Recovering/Resolving]
  - Weight increased [Recovering/Resolving]
  - Drug ineffective [Unknown]
